FAERS Safety Report 6107421-X (Version None)
Quarter: 2009Q1

REPORT INFORMATION
  Report Type: 
  Country: None (occurrence: None)
  Receive Date: 20090309
  Receipt Date: 20090224
  Transmission Date: 20090719
  Serious: Yes (Life-Threatening, Hospitalization)
  Sender: FDA-Public Use
  Company Number: AU-ELI_LILLY_AND_COMPANY-AU200902000867

PATIENT
  Age: 57 Year
  Sex: Female

DRUGS (2)
  1. CYMBALTA [Suspect]
     Indication: DEPRESSION
     Dosage: 90 MG, DAILY (1/D)
     Route: 065
     Dates: start: 20081001, end: 20090101
  2. CLOZAPINE [Interacting]
     Indication: SCHIZOPHRENIA
     Dosage: 300 MG, UNKNOWN
     Route: 065
     Dates: start: 20090105, end: 20090120

REACTIONS (4)
  - COUGH [None]
  - DRUG INTERACTION [None]
  - DRUG LEVEL INCREASED [None]
  - TROPONIN INCREASED [None]
